FAERS Safety Report 9798708 (Version 2)
Quarter: 2015Q3

REPORT INFORMATION
  Report Type: Spontaneous
  Country: US (occurrence: US)
  Receive Date: 20140106
  Receipt Date: 20150806
  Transmission Date: 20151125
  Serious: No
  Sender: FDA-Public Use
  Company Number: US-GILEAD-2010-0029890

PATIENT
  Age: 73 Year
  Sex: Female
  Weight: 66.68 kg

DRUGS (6)
  1. LETAIRIS [Suspect]
     Active Substance: AMBRISENTAN
     Indication: PULMONARY ARTERIAL HYPERTENSION
     Route: 048
     Dates: start: 20100330
  2. SIMVASTATIN. [Concomitant]
     Active Substance: SIMVASTATIN
  3. OXYGEN. [Concomitant]
     Active Substance: OXYGEN
  4. TRACLEER [Concomitant]
     Active Substance: BOSENTAN
  5. COZAAR [Concomitant]
     Active Substance: LOSARTAN POTASSIUM
  6. WARFARIN [Concomitant]
     Active Substance: WARFARIN

REACTIONS (1)
  - Weight decreased [Unknown]
